FAERS Safety Report 6693032-4 (Version None)
Quarter: 2010Q2

REPORT INFORMATION
  Report Type: 
  Country: None (occurrence: None)
  Receive Date: 20100422
  Receipt Date: 20100414
  Transmission Date: 20101027
  Serious: Yes (Other)
  Sender: FDA-Public Use
  Company Number: JP-ELI_LILLY_AND_COMPANY-JP201004004479

PATIENT
  Age: 66 Year
  Sex: Female

DRUGS (3)
  1. GEMZAR [Suspect]
     Indication: BLADDER CANCER STAGE IV
     Route: 042
     Dates: start: 20090119, end: 20090101
  2. CISPLATIN [Concomitant]
     Indication: BLADDER CANCER STAGE IV
     Dosage: UNK, UNK
     Route: 042
     Dates: start: 20090119, end: 20090101
  3. PACLITAXEL [Concomitant]
     Indication: BLADDER CANCER STAGE IV
     Route: 042
     Dates: start: 20090520

REACTIONS (2)
  - ADVERSE DRUG REACTION [None]
  - CHYLOTHORAX [None]
